FAERS Safety Report 8452006-3 (Version None)
Quarter: 2012Q2

REPORT INFORMATION
  Report Type: 
  Country: None (occurrence: None)
  Receive Date: 20120620
  Receipt Date: 20120608
  Transmission Date: 20120825
  Serious: Yes (Hospitalization)
  Sender: FDA-Public Use
  Company Number: FR-GILEAD-2012-0056728

PATIENT
  Age: 57 Year
  Sex: Female

DRUGS (8)
  1. INTELENCE [Interacting]
     Indication: HIV INFECTION
     Dosage: 2 DF, BID
     Route: 048
  2. ISENTRESS [Concomitant]
     Dosage: UNK
     Route: 065
  3. EPIVIR [Concomitant]
     Dosage: UNK
     Route: 065
  4. LASIX [Concomitant]
     Dosage: UNK
     Route: 065
  5. AMBRISENTAN [Suspect]
     Indication: PULMONARY ARTERIAL HYPERTENSION
     Dosage: 10 MG, QD
     Route: 048
     Dates: start: 20090223
  6. REVATIO [Interacting]
     Indication: PULMONARY ARTERIAL HYPERTENSION
     Dosage: 60 MG, QD
     Route: 048
     Dates: start: 20070901
  7. POTASSIUM CHLORIDE [Concomitant]
     Dosage: UNK
     Route: 065
  8. ZOLPIDEM TARTRATE [Concomitant]
     Dosage: UNK
     Route: 065

REACTIONS (3)
  - DRUG INTERACTION [None]
  - CONDITION AGGRAVATED [None]
  - PULMONARY HYPERTENSION [None]
